FAERS Safety Report 4623737-8 (Version None)
Quarter: 2005Q1

REPORT INFORMATION
  Report Type: 
  Country: None (occurrence: None)
  Receive Date: 20050331
  Receipt Date: 20040906
  Transmission Date: 20050727
  Serious: Yes (Other)
  Sender: FDA-Public Use
  Company Number: PHNU2004DE03128

PATIENT
  Sex: Male
  Weight: 90 kg

DRUGS (2)
  1. SANDOSTATIN LAR [Suspect]
     Indication: ACROMEGALY
     Dosage: UNK, UNK
     Route: 030
     Dates: start: 20040301
  2. SANDOSTATIN [Suspect]
     Indication: ACROMEGALY
     Route: 058
     Dates: start: 20040201, end: 20040301

REACTIONS (5)
  - ABDOMINAL DISCOMFORT [None]
  - FLATULENCE [None]
  - FOOD INTOLERANCE [None]
  - GASTROCARDIAC SYNDROME [None]
  - TACHYCARDIA [None]
